FAERS Safety Report 6278048-4 (Version None)
Quarter: 2009Q3

REPORT INFORMATION
  Report Type: 
  Country: None (occurrence: None)
  Receive Date: 20090722
  Receipt Date: 20090714
  Transmission Date: 20100115
  Serious: Yes (Other)
  Sender: FDA-Public Use
  Company Number: PHHY2009BR29553

PATIENT
  Sex: Female

DRUGS (3)
  1. RASILEZ [Suspect]
     Indication: BLOOD PRESSURE
     Dosage: 1 TABLET (300 MG) DAILY
     Route: 048
  2. DIGOXIN [Concomitant]
     Indication: CARDIAC DISORDER
     Dosage: 1 TABLET (0.25 MG) DAILY
     Route: 048
  3. RIVOTRIL [Concomitant]
     Indication: CARDIAC DISORDER
     Dosage: 1 TABLET (0.5 MG) DAILY
     Route: 048

REACTIONS (9)
  - ABDOMINAL PAIN [None]
  - ABDOMINAL PAIN UPPER [None]
  - DIARRHOEA [None]
  - DISBACTERIOSIS [None]
  - DYSENTERY [None]
  - ERUCTATION [None]
  - FLATULENCE [None]
  - GASTRITIS [None]
  - MUCOUS STOOLS [None]
